FAERS Safety Report 4342622-2 (Version None)
Quarter: 2004Q1

REPORT INFORMATION
  Report Type: 
  Country: None (occurrence: None)
  Receive Date: 20040213
  Receipt Date: 20031124
  Transmission Date: 20041129
  Serious: No
  Sender: FDA-Public Use
  Company Number: 352771

PATIENT
  Age: 47 Year
  Sex: Female
  Weight: 72.6 kg

DRUGS (3)
  1. PEGASYS (PEG-INTERFERON ALFA-2A) 180 MCG/ML [Suspect]
     Indication: HEPATITIS C
     Dosage: 180 MCG OTHER
     Route: 050
     Dates: start: 20030620, end: 20031115
  2. COPEGUS [Suspect]
     Indication: HEPATITIS C
     Dosage: 1000 MG DAILY ORAL
     Route: 048
     Dates: start: 20030620, end: 20031115
  3. WELLBUTRIN [Suspect]
     Indication: DEPRESSION
     Dosage: 1 DOSE FORM DAILY ORAL
     Route: 048

REACTIONS (2)
  - ALOPECIA [None]
  - ANAEMIA HAEMOLYTIC AUTOIMMUNE [None]
